FAERS Safety Report 25864302 (Version 1)
Quarter: 2025Q3

REPORT INFORMATION
  Report Type: Spontaneous
  Country: US (occurrence: None)
  Receive Date: 20250929
  Receipt Date: 20250929
  Transmission Date: 20251020
  Serious: No
  Sender: FDA-CTU
  Company Number: None

PATIENT
  Age: 31 Year
  Sex: Male
  Weight: 54 kg

DRUGS (1)
  1. PEPCID [Suspect]
     Active Substance: FAMOTIDINE

REACTIONS (1)
  - Depression [None]

NARRATIVE: CASE EVENT DATE: 20250925
